FAERS Safety Report 5888360-6 (Version None)
Quarter: 2008Q3

REPORT INFORMATION
  Report Type: 
  Country: None (occurrence: None)
  Receive Date: 20080916
  Receipt Date: 20080905
  Transmission Date: 20090109
  Serious: Yes (Disabling)
  Sender: FDA-Public Use
  Company Number: GXKR2008IN08574

PATIENT
  Age: 22 Year
  Sex: Female
  Weight: 44.7 kg

DRUGS (4)
  1. RIFAMPICIN+ISONIAZID+PYRAZINAMIDE+ETHAMBUTOL HYDROCHLORIDE (NGX)(ETHAM [Suspect]
     Indication: PULMONARY TUBERCULOSIS
     Dosage: ORAL
     Route: 048
     Dates: start: 20080403, end: 20080803
  2. LEVOFLOXACIN [Concomitant]
  3. ONDANSETRON HCL [Concomitant]
  4. RABEPRAZOLE SODIUM [Concomitant]

REACTIONS (2)
  - ARTHRALGIA [None]
  - GOUT [None]
